FAERS Safety Report 8162240-8 (Version None)
Quarter: 2012Q1

REPORT INFORMATION
  Report Type: 
  Country: None (occurrence: None)
  Receive Date: 20120224
  Receipt Date: 20111031
  Transmission Date: 20120608
  Serious: No
  Sender: FDA-Public Use
  Company Number: US-BRISTOL-MYERS SQUIBB COMPANY-16179335

PATIENT
  Age: 55 Year
  Sex: Female

DRUGS (2)
  1. METFORMIN HCL [Suspect]
     Dosage: RX:7383235
  2. LANTUS [Suspect]
     Indication: TYPE 2 DIABETES MELLITUS
     Dosage: 1DF: 40UNITS/DAY. INTER DATE: 2011. LANTUS/PARENTERAL/INJ SOLN/100IU/ML.
     Route: 058

REACTIONS (2)
  - HEADACHE [None]
  - URINE ODOUR ABNORMAL [None]
